FAERS Safety Report 7715406-2 (Version None)
Quarter: 2011Q3

REPORT INFORMATION
  Report Type: 
  Country: None (occurrence: None)
  Receive Date: 20110829
  Receipt Date: 20110822
  Transmission Date: 20111222
  Serious: Yes (Other)
  Sender: FDA-Public Use
  Company Number: US-PFIZER INC-2011194579

PATIENT
  Sex: Female
  Weight: 73 kg

DRUGS (2)
  1. LYRICA [Suspect]
     Indication: MUSCULOSKELETAL PAIN
     Dosage: 50 MG, 3X/DAY
     Dates: start: 20110822, end: 20110822
  2. LYRICA [Suspect]
     Indication: FIBROMYALGIA
     Dosage: 25 MG, 3X/DAY
     Route: 048
     Dates: start: 20110801, end: 20110821

REACTIONS (14)
  - TREMOR [None]
  - PSYCHOTIC DISORDER [None]
  - ROTATOR CUFF SYNDROME [None]
  - FEELING JITTERY [None]
  - MANIA [None]
  - HALLUCINATION, VISUAL [None]
  - DIZZINESS [None]
  - AGITATION [None]
  - FEELING ABNORMAL [None]
  - CONFUSIONAL STATE [None]
  - VISION BLURRED [None]
  - PSYCHOMOTOR HYPERACTIVITY [None]
  - MEMORY IMPAIRMENT [None]
  - NIGHTMARE [None]
